FAERS Safety Report 9530249 (Version 2)
Quarter: 2013Q3

REPORT INFORMATION
  Report Type: Spontaneous
  Country: AU (occurrence: AU)
  Receive Date: 20130917
  Receipt Date: 20130917
  Transmission Date: 20140515
  Serious: Yes (Hospitalization)
  Sender: FDA-Public Use
  Company Number: AU-GILEAD-2013-0081501

PATIENT
  Age: 51 Year
  Sex: Female

DRUGS (6)
  1. AMBRISENTAN [Suspect]
     Indication: PULMONARY ARTERIAL HYPERTENSION
     Dosage: 10 MG, UNK
     Route: 065
     Dates: start: 20130802, end: 20130807
  2. REVATIO [Concomitant]
     Indication: PULMONARY ARTERIAL HYPERTENSION
     Dosage: 20MG THREE TIMES PER DAY
     Dates: start: 20130430
  3. NIFEDIPINE [Concomitant]
     Indication: PERIPHERAL ISCHAEMIA
  4. IMDUR [Concomitant]
     Indication: PERIPHERAL ISCHAEMIA
  5. NEXIUM                             /01479302/ [Concomitant]
     Indication: ILL-DEFINED DISORDER
  6. GTN CREAM [Concomitant]
     Indication: PERIPHERAL ISCHAEMIA

REACTIONS (3)
  - Cough [Recovered/Resolved]
  - Dyspnoea [Recovered/Resolved]
  - Nasal congestion [Recovered/Resolved]
